FAERS Safety Report 7049687-8 (Version None)
Quarter: 2010Q4

REPORT INFORMATION
  Report Type: 
  Country: None (occurrence: None)
  Receive Date: 20101013
  Receipt Date: 20100901
  Transmission Date: 20110411
  Serious: Yes (Death, Hospitalization)
  Sender: FDA-Public Use
  Company Number: 2009AC000519

PATIENT
  Age: 40 Year
  Sex: Male
  Weight: 123.832 kg

DRUGS (5)
  1. DIGOXIN [Suspect]
     Indication: ATRIAL FIBRILLATION
     Dosage: 0.25 MG;QD;PO
     Route: 048
     Dates: start: 20071008, end: 20071214
  2. DIGOXIN [Suspect]
     Indication: ATRIAL FIBRILLATION
     Dosage: .5 MG;QD;PO
     Route: 048
     Dates: start: 20071001
  3. BENZAPRIL [Concomitant]
  4. LOTREL [Concomitant]
  5. COUMADIN [Concomitant]

REACTIONS (30)
  - ANAEMIA [None]
  - ANHEDONIA [None]
  - ANXIETY [None]
  - ARRHYTHMIA [None]
  - CARDIAC ARREST [None]
  - CARDIAC FAILURE CONGESTIVE [None]
  - CIRCULATORY COLLAPSE [None]
  - CONDITION AGGRAVATED [None]
  - DECREASED APPETITE [None]
  - DEFORMITY [None]
  - DIARRHOEA [None]
  - ECONOMIC PROBLEM [None]
  - ELECTROENCEPHALOGRAM ABNORMAL [None]
  - FATIGUE [None]
  - HEART RATE IRREGULAR [None]
  - HYPERTHYROIDISM [None]
  - HYPOTENSION [None]
  - INJURY [None]
  - LOSS OF EMPLOYMENT [None]
  - MALAISE [None]
  - NAUSEA [None]
  - PAIN [None]
  - SOCIAL PROBLEM [None]
  - SUDDEN DEATH [None]
  - SYNCOPE [None]
  - TREATMENT NONCOMPLIANCE [None]
  - VENTRICULAR FIBRILLATION [None]
  - VISUAL IMPAIRMENT [None]
  - VOMITING [None]
  - WEIGHT DECREASED [None]
